FAERS Safety Report 15585949 (Version 1)
Quarter: 2018Q4

REPORT INFORMATION
  Report Type: Spontaneous
  Country: US (occurrence: US)
  Receive Date: 20181105
  Receipt Date: 20181105
  Transmission Date: 20190205
  Serious: Yes (Other)
  Sender: FDA-Public Use
  Company Number: US-LPDUSPRD-20182048

PATIENT

DRUGS (1)
  1. PAPAVERINE HCL INJECTION, USP (4002-25) [Suspect]
     Active Substance: PAPAVERINE HYDROCHLORIDE
     Dosage: 99 MG/ML
     Route: 065
     Dates: start: 2016, end: 2016

REACTIONS (2)
  - Product used for unknown indication [Unknown]
  - Hypotension [Unknown]

NARRATIVE: CASE EVENT DATE: 2016
